FAERS Safety Report 7457644-2 (Version None)
Quarter: 2011Q2

REPORT INFORMATION
  Report Type: 
  Country: None (occurrence: None)
  Receive Date: 20110504
  Receipt Date: 20101223
  Transmission Date: 20111010
  Serious: Yes (Life-Threatening, Hospitalization)
  Sender: FDA-Public Use
  Company Number: US-BAYER-200939004NA

PATIENT
  Age: 17 Year
  Sex: Female
  Weight: 59 kg

DRUGS (6)
  1. CLARITIN [Concomitant]
     Dosage: 20 MG, QD, PRN
     Route: 048
  2. ALBUTEROL [Concomitant]
     Indication: ASTHMA
     Dosage: 1-2 PUFFS PRN
     Route: 055
  3. YASMIN [Suspect]
     Indication: ACNE
     Dosage: 1
     Route: 048
     Dates: start: 20070101, end: 20090320
  4. PROAIR HFA [Concomitant]
     Indication: ASTHMA
     Dosage: UNK
     Route: 055
     Dates: start: 20070101
  5. XOPENEX [Concomitant]
     Indication: ASTHMA
     Route: 055
  6. YASMIN [Suspect]
     Indication: PREMENSTRUAL SYNDROME

REACTIONS (3)
  - CHEST PAIN [None]
  - DYSPNOEA [None]
  - PULMONARY EMBOLISM [None]
